FAERS Safety Report 22603395 (Version 2)
Quarter: 2023Q2

REPORT INFORMATION
  Report Type: Other
  Country: DE (occurrence: None)
  Receive Date: 20230615
  Receipt Date: 20230619
  Transmission Date: 20230722
  Serious: Yes (Other)
  Sender: FDA-Public Use
  Company Number: DE-ROCHE-3194189

PATIENT
  Age: 45 Year
  Sex: Male
  Weight: 67 kg

DRUGS (10)
  1. OCRELIZUMAB [Suspect]
     Active Substance: OCRELIZUMAB
     Indication: Primary progressive multiple sclerosis
     Route: 042
     Dates: start: 20200908, end: 20200922
  2. OCRELIZUMAB [Suspect]
     Active Substance: OCRELIZUMAB
     Dosage: MOST RECENT DOSE RECEIVED ON 23/MAR/2021
     Route: 042
     Dates: start: 20210323
  3. DICLOFENAC [Concomitant]
     Active Substance: DICLOFENAC
     Indication: Cataract operation
     Route: 031
     Dates: start: 202208, end: 202208
  4. EFEROX [Concomitant]
     Active Substance: LEVOTHYROXINE SODIUM
     Indication: Hypothyroidism
     Route: 048
     Dates: start: 20220908
  5. DEXAMETHASONE\NEOMYCIN SULFATE\POLYMYXIN B SULFATE [Concomitant]
     Active Substance: DEXAMETHASONE\NEOMYCIN SULFATE\POLYMYXIN B SULFATE
     Indication: Cataract operation
     Route: 031
     Dates: start: 202208, end: 202208
  6. PREDNI POS [Concomitant]
     Indication: Angle closure glaucoma
     Route: 047
     Dates: start: 20210823, end: 20210825
  7. BRIMONIDINE [Concomitant]
     Active Substance: BRIMONIDINE TARTRATE
     Indication: Glaucoma
     Route: 047
     Dates: start: 201906, end: 20210822
  8. BRIMONIDINE [Concomitant]
     Active Substance: BRIMONIDINE TARTRATE
     Route: 047
     Dates: start: 20210823
  9. PROPIONIC ACID [Concomitant]
     Active Substance: PROPIONIC ACID
     Route: 048
     Dates: start: 20221215
  10. ACEMIT [Concomitant]
     Indication: Angle closure glaucoma
     Route: 048
     Dates: start: 20210823, end: 20210825

REACTIONS (4)
  - Posterior capsule opacification [Recovered/Resolved]
  - Cataract [Recovered/Resolved]
  - Vitamin D deficiency [Not Recovered/Not Resolved]
  - Hypothyroidism [Not Recovered/Not Resolved]

NARRATIVE: CASE EVENT DATE: 20220815
